FAERS Safety Report 24862411 (Version 12)
Quarter: 2025Q4

REPORT INFORMATION
  Report Type: Report from Study
  Country: US (occurrence: US)
  Receive Date: 20250120
  Receipt Date: 20251010
  Transmission Date: 20260118
  Serious: Yes (Hospitalization)
  Sender: STEMLINE THERAPEUTICS
  Company Number: US-STEMLINE THERAPEUTICS, INC-2025-STML-US000129

PATIENT

DRUGS (8)
  1. ORSERDU [Suspect]
     Active Substance: ELACESTRANT
     Indication: Breast cancer female
     Dosage: UNK, DAILY
     Route: 048
     Dates: start: 20241218, end: 20250101
  2. ORSERDU [Suspect]
     Active Substance: ELACESTRANT
     Dosage: UNK, DAILY
     Route: 065
     Dates: start: 20250114
  3. ORSERDU [Suspect]
     Active Substance: ELACESTRANT
     Dosage: UNK, DAILY
     Route: 065
     Dates: start: 20250220
  4. ORSERDU [Suspect]
     Active Substance: ELACESTRANT
     Dosage: UNK, DAILY (THREE PILLS A DAY)
     Route: 065
  5. ORSERDU [Suspect]
     Active Substance: ELACESTRANT
     Dosage: UNK, DAILY (4 PILLS A DAY)
     Route: 065
     Dates: start: 20250527
  6. ORSERDU [Suspect]
     Active Substance: ELACESTRANT
     Dosage: UNK, DAILY
     Route: 065
     Dates: start: 20250603
  7. ORSERDU [Suspect]
     Active Substance: ELACESTRANT
     Dosage: 4 DOSAGE FORM, DAILY
     Route: 048
     Dates: start: 20250909
  8. ORSERDU [Suspect]
     Active Substance: ELACESTRANT
     Dosage: 344 MG, DAILY (Q24)
     Route: 048
     Dates: end: 20251002

REACTIONS (16)
  - Viral infection [Recovered/Resolved]
  - Peripheral swelling [Recovered/Resolved]
  - Mobility decreased [Recovered/Resolved]
  - Gastroenteritis viral [Recovering/Resolving]
  - Blood glucose decreased [Recovering/Resolving]
  - Cystitis [Unknown]
  - Dyspepsia [Recovered/Resolved]
  - Decreased appetite [Recovered/Resolved]
  - Abdominal pain upper [Not Recovered/Not Resolved]
  - Gastrooesophageal reflux disease [Unknown]
  - Dyspepsia [Not Recovered/Not Resolved]
  - Abdominal discomfort [Recovering/Resolving]
  - Tumour marker increased [Not Recovered/Not Resolved]
  - Therapy interrupted [Unknown]
  - Product distribution issue [Unknown]
  - Underdose [Unknown]

NARRATIVE: CASE EVENT DATE: 20251001
